FAERS Safety Report 20487308 (Version 10)
Quarter: 2024Q1

REPORT INFORMATION
  Report Type: Spontaneous
  Country: CA (occurrence: CA)
  Receive Date: 20220217
  Receipt Date: 20240117
  Transmission Date: 20240410
  Serious: Yes (Other)
  Sender: FDA-Public Use
  Company Number: CA-CELLTRION INC.-2021CA018100

PATIENT

DRUGS (17)
  1. INFLECTRA [Suspect]
     Active Substance: INFLIXIMAB-DYYB
     Indication: Colitis ulcerative
     Dosage: 450 MG 0, 2, 6, THEN EVERY 8 WEEKS
     Route: 042
     Dates: start: 20211102
  2. INFLECTRA [Suspect]
     Active Substance: INFLIXIMAB-DYYB
     Dosage: 450 MG 0, 2, 6, THEN EVERY 8 WEEKS
     Route: 042
     Dates: start: 20211115
  3. INFLECTRA [Suspect]
     Active Substance: INFLIXIMAB-DYYB
     Dosage: 450 MG 0, 2, 6, THEN EVERY 8 WEEKS
     Route: 042
     Dates: start: 20211213
  4. INFLECTRA [Suspect]
     Active Substance: INFLIXIMAB-DYYB
     Dosage: 450 MG, AFTER 4 WEEKS AND 3 DAYS (PRESCRIBED EVERY 8 WEEKS)
     Route: 042
     Dates: start: 20220113
  5. INFLECTRA [Suspect]
     Active Substance: INFLIXIMAB-DYYB
     Dosage: 450 MG 0, 2, 6, THEN EVERY 8 WEEKS
     Route: 042
     Dates: start: 20220301
  6. INFLECTRA [Suspect]
     Active Substance: INFLIXIMAB-DYYB
     Dosage: 450 MG 0, 2, 6, THEN EVERY 8 WEEKS
     Route: 042
     Dates: start: 20220428
  7. INFLECTRA [Suspect]
     Active Substance: INFLIXIMAB-DYYB
     Dosage: 450 MG 0, 2, 6, THEN EVERY 8 WEEKS
     Route: 042
     Dates: start: 20220623
  8. INFLECTRA [Suspect]
     Active Substance: INFLIXIMAB-DYYB
     Dosage: 450 MG 0, 2, 6, THEN EVERY 8 WEEKS
     Route: 042
     Dates: start: 20220825
  9. INFLECTRA [Suspect]
     Active Substance: INFLIXIMAB-DYYB
     Dosage: 450 MG 0, 2, 6, THEN EVERY 8 WEEKS
     Route: 042
     Dates: start: 20230608
  10. INFLECTRA [Suspect]
     Active Substance: INFLIXIMAB-DYYB
     Dosage: 450 MG, 11 WEEKS AND 4 DAYS, PRESCRIBED ARE EVERY 8 WEEKS
     Route: 042
     Dates: start: 20230828
  11. INFLECTRA [Suspect]
     Active Substance: INFLIXIMAB-DYYB
     Dosage: 460 MG, AFTER 11 WEEKS (PRESCRIBED 450MG, EVERY 8 WEEKS)
     Route: 042
     Dates: start: 20231113
  12. INFLECTRA [Suspect]
     Active Substance: INFLIXIMAB-DYYB
     Dosage: 460MG, EVERY 8 WEEKS
     Route: 042
     Dates: start: 20240108
  13. METHOTREXATE [Concomitant]
     Active Substance: METHOTREXATE
     Dosage: 1 DF
  14. PENTASA [Concomitant]
     Active Substance: MESALAMINE
     Dosage: 2 MG, 2X/DAY
     Route: 065
  15. MESALAMINE [Concomitant]
     Active Substance: MESALAMINE
     Dosage: 100 MG, AS NEEDED (AT BED TIME)
     Route: 065
  16. MESALAMINE [Concomitant]
     Active Substance: MESALAMINE
     Dosage: 1000 MG, AS NEEDED, HS,PRN
     Route: 065
  17. CLOBETASOL [Concomitant]
     Active Substance: CLOBETASOL
     Indication: Lichen sclerosus
     Dosage: UNK
     Route: 061

REACTIONS (8)
  - Blindness [Unknown]
  - Condition aggravated [Recovered/Resolved]
  - Vision blurred [Unknown]
  - Visual acuity reduced [Not Recovered/Not Resolved]
  - Red blood cell sedimentation rate increased [Not Recovered/Not Resolved]
  - COVID-19 [Unknown]
  - Off label use [Unknown]
  - Inappropriate schedule of product administration [Unknown]

NARRATIVE: CASE EVENT DATE: 20220113
